FAERS Safety Report 14016885 (Version 1)
Quarter: 2017Q3

REPORT INFORMATION
  Report Type: Spontaneous
  Country: GB (occurrence: GB)
  Receive Date: 20170927
  Receipt Date: 20170927
  Transmission Date: 20171128
  Serious: Yes (Life-Threatening, Hospitalization, Other)
  Sender: FDA-Public Use
  Company Number: GB-SA-2017SA172661

PATIENT
  Age: 28 Year
  Sex: Female

DRUGS (3)
  1. HYDROCORTISONE SALT NOT SPECIFIED [Suspect]
     Active Substance: HYDROCORTISONE
     Indication: VOMITING
     Route: 042
  2. RANITIDINE. [Suspect]
     Active Substance: RANITIDINE
     Indication: VOMITING
     Route: 065
  3. OMEPRAZOLE. [Suspect]
     Active Substance: OMEPRAZOLE
     Indication: VOMITING
     Route: 065

REACTIONS (11)
  - Respiratory alkalosis [Recovering/Resolving]
  - Base excess decreased [Recovering/Resolving]
  - Anion gap increased [Recovering/Resolving]
  - Heart rate increased [Recovering/Resolving]
  - Condition aggravated [Recovering/Resolving]
  - Blood pH decreased [Recovered/Resolved]
  - Exposure during pregnancy [Unknown]
  - Ketoacidosis [Recovering/Resolving]
  - Blood bicarbonate decreased [Recovering/Resolving]
  - Respiratory rate increased [Recovering/Resolving]
  - PCO2 decreased [Recovering/Resolving]
